FAERS Safety Report 7357996-8 (Version None)
Quarter: 2011Q1

REPORT INFORMATION
  Report Type: 
  Country: None (occurrence: None)
  Receive Date: 20110317
  Receipt Date: 20110308
  Transmission Date: 20110831
  Serious: Yes (Other)
  Sender: FDA-Public Use
  Company Number: US-AMGEN-USASP2011013135

PATIENT
  Age: 78 Year
  Sex: Female

DRUGS (2)
  1. OXYCONTIN [Concomitant]
  2. ENBREL [Suspect]
     Indication: RHEUMATOID ARTHRITIS
     Dosage: 50 MG, QWK
     Dates: start: 20100225

REACTIONS (3)
  - ADVERSE DRUG REACTION [None]
  - HALLUCINATION, VISUAL [None]
  - DRUG INEFFECTIVE [None]
